FAERS Safety Report 21913106 (Version 1)
Quarter: 2023Q1

REPORT INFORMATION
  Report Type: Report from Study
  Country: CA (occurrence: CA)
  Receive Date: 20230125
  Receipt Date: 20230125
  Transmission Date: 20230417
  Serious: Yes (Hospitalization, Other)
  Sender: FDA-Public Use
  Company Number: CA-002147023-PHHY2019CA130903

PATIENT
  Age: 25 Year
  Sex: Female

DRUGS (20)
  1. AIMOVIG [Suspect]
     Active Substance: ERENUMAB-AOOE
     Indication: Migraine
     Dosage: 140 MG, QMO
     Route: 058
     Dates: start: 20181212, end: 20190512
  2. AIMOVIG [Suspect]
     Active Substance: ERENUMAB-AOOE
     Dosage: 140 MG
     Route: 065
  3. AIMOVIG [Suspect]
     Active Substance: ERENUMAB-AOOE
     Dosage: UNK
     Route: 065
  4. TOPIRAMATE [Suspect]
     Active Substance: TOPIRAMATE
     Indication: Migraine
     Dosage: 1 DOSAGE FORM, 2 EVERY 1 DAY
     Route: 065
  5. CANDESARTAN [Suspect]
     Active Substance: CANDESARTAN
     Indication: Migraine
     Dosage: 8 MG, QD (1 EVERY 1 DAY)
     Route: 065
  6. PROPRANOLOL HYDROCHLORIDE [Suspect]
     Active Substance: PROPRANOLOL HYDROCHLORIDE
     Indication: Post-traumatic stress disorder
     Dosage: UNK
     Route: 065
  7. PROPRANOLOL HYDROCHLORIDE [Suspect]
     Active Substance: PROPRANOLOL HYDROCHLORIDE
     Indication: Migraine
     Dosage: UNK
     Route: 065
  8. PROPRANOLOL HYDROCHLORIDE [Suspect]
     Active Substance: PROPRANOLOL HYDROCHLORIDE
     Dosage: UNK
     Route: 065
  9. PROPRANOLOL HYDROCHLORIDE [Suspect]
     Active Substance: PROPRANOLOL HYDROCHLORIDE
     Dosage: UNK
     Route: 065
  10. AMITRIPTYLINE [Concomitant]
     Active Substance: AMITRIPTYLINE
     Indication: Product used for unknown indication
     Dosage: UNK
     Route: 065
  11. ACETAMINOPHEN\TRAMADOL HYDROCHLORIDE [Concomitant]
     Active Substance: ACETAMINOPHEN\TRAMADOL HYDROCHLORIDE
     Indication: Fibromyalgia
     Dosage: UNK
     Route: 065
  12. BOTULINUM TOXIN TYPE A [Concomitant]
     Active Substance: BOTULINUM TOXIN TYPE A
     Indication: Product used for unknown indication
     Dosage: 2000 IU, (POWDER FOR SOLUTION)
     Route: 065
  13. CAMBIA [Concomitant]
     Active Substance: DICLOFENAC POTASSIUM
     Indication: Product used for unknown indication
     Dosage: UNK (POWDER FOR SOLUTION ORAL)
     Route: 065
  14. CYMBALTA [Concomitant]
     Active Substance: DULOXETINE HYDROCHLORIDE
     Indication: Product used for unknown indication
     Dosage: UNK
     Route: 065
  15. ELETRIPTAN HYDROBROMIDE [Concomitant]
     Active Substance: ELETRIPTAN HYDROBROMIDE
     Indication: Product used for unknown indication
     Dosage: UNK
     Route: 065
  16. MAGNESIUM [Concomitant]
     Active Substance: MAGNESIUM
     Indication: Product used for unknown indication
     Dosage: 400 MG, QD (1 EVERY 1 DAYS)
     Route: 065
  17. NAPROXEN [Concomitant]
     Active Substance: NAPROXEN
     Indication: Product used for unknown indication
     Dosage: UNK
     Route: 065
  18. NORTRIPTYLINE HYDROCHLORIDE [Concomitant]
     Active Substance: NORTRIPTYLINE HYDROCHLORIDE
     Indication: Product used for unknown indication
     Dosage: 30 MG, QD (1 EVERY 1 DAYS)
     Route: 065
  19. NORTRIPTYLINE HYDROCHLORIDE [Concomitant]
     Active Substance: NORTRIPTYLINE HYDROCHLORIDE
     Dosage: 25 MG
     Route: 065
  20. PREGABALIN [Concomitant]
     Active Substance: PREGABALIN
     Indication: Product used for unknown indication
     Dosage: 150 MG
     Route: 065

REACTIONS (12)
  - Immunodeficiency [Unknown]
  - Insomnia [Unknown]
  - Malaise [Unknown]
  - Nausea [Unknown]
  - Photosensitivity reaction [Unknown]
  - Dysarthria [Unknown]
  - Injection site pain [Unknown]
  - Vomiting [Unknown]
  - Migraine [Unknown]
  - Headache [Unknown]
  - Product use in unapproved indication [Unknown]
  - Drug ineffective [Unknown]
